FAERS Safety Report 5312985-X (Version None)
Quarter: 2007Q2

REPORT INFORMATION
  Report Type: 
  Country: None (occurrence: None)
  Receive Date: 20070430
  Receipt Date: 20070418
  Transmission Date: 20071010
  Serious: Yes (Hospitalization, Other)
  Sender: FDA-Public Use
  Company Number: JP-PFIZER INC-2007003771

PATIENT
  Sex: Female

DRUGS (5)
  1. LIPITOR [Suspect]
     Indication: HYPERCHOLESTEROLAEMIA
     Dosage: DAILY DOSE:10MG
     Route: 048
     Dates: start: 20060704, end: 20070105
  2. PERDIPINE [Concomitant]
     Indication: HYPERTENSION
     Dosage: DAILY DOSE:40MG
     Route: 048
     Dates: start: 20060309, end: 20070105
  3. MUCOSTA [Concomitant]
     Indication: REFLUX OESOPHAGITIS
     Dosage: DAILY DOSE:300MG
     Route: 048
     Dates: start: 20050418, end: 20070105
  4. TOUGHMAC E [Concomitant]
     Indication: REFLUX OESOPHAGITIS
     Route: 048
     Dates: start: 20050418, end: 20070105
  5. TAKEPRON [Concomitant]
     Indication: REFLUX OESOPHAGITIS
     Route: 048
     Dates: start: 20050418, end: 20070105

REACTIONS (3)
  - ERYTHEMA MULTIFORME [None]
  - HEPATIC FUNCTION ABNORMAL [None]
  - PURPURA [None]
